FAERS Safety Report 5427516-3 (Version None)
Quarter: 2007Q3

REPORT INFORMATION
  Report Type: 
  Country: None (occurrence: None)
  Receive Date: 20070828
  Receipt Date: 20070817
  Transmission Date: 20080115
  Serious: Yes (Hospitalization)
  Sender: FDA-Public Use
  Company Number: US-JNJFOC-20070803995

PATIENT
  Age: 22 Year
  Sex: Male

DRUGS (1)
  1. INVEGA [Suspect]
     Indication: DRUG USE FOR UNKNOWN INDICATION
     Route: 048

REACTIONS (2)
  - CONSTIPATION [None]
  - PSYCHIATRIC SYMPTOM [None]
